FAERS Safety Report 5835629-7 (Version None)
Quarter: 2008Q3

REPORT INFORMATION
  Report Type: 
  Country: None (occurrence: None)
  Receive Date: 20080801
  Receipt Date: 20080725
  Transmission Date: 20090109
  Serious: Yes (Other)
  Sender: FDA-Public Use
  Company Number: CHPA2008US12659

PATIENT
  Age: 51 Year
  Sex: Female
  Weight: 117.9 kg

DRUGS (1)
  1. NICOTINE [Suspect]
     Indication: SMOKING CESSATION THERAPY
     Dosage: 21 MG, TRANSDERMAL
     Route: 062
     Dates: start: 20040101

REACTIONS (3)
  - CHROMATURIA [None]
  - INTENTIONAL DRUG MISUSE [None]
  - MOOD SWINGS [None]
